FAERS Safety Report 18893398 (Version 2)
Quarter: 2021Q1

REPORT INFORMATION
  Report Type: Report from Study
  Country: None (occurrence: US)
  Receive Date: 20210215
  Receipt Date: 20210217
  Transmission Date: 20210420
  Serious: Yes (Other)
  Sender: FDA-Public Use
  Company Number: US-ABBVIE-21K-163-3774011-00

PATIENT
  Sex: Male
  Weight: 88.53 kg

DRUGS (3)
  1. DUOPA [Suspect]
     Active Substance: CARBIDOPA\LEVODOPA
  2. DUOPA [Suspect]
     Active Substance: CARBIDOPA\LEVODOPA
     Indication: PRODUCT USED FOR UNKNOWN INDICATION
     Dosage: 24 HOUR INFUSION
     Route: 050
     Dates: start: 20180327
  3. CARBIDOPA LEVODOPA [Suspect]
     Active Substance: CARBIDOPA\LEVODOPA
     Indication: PRODUCT USED FOR UNKNOWN INDICATION
     Route: 048

REACTIONS (8)
  - Dementia with Lewy bodies [Unknown]
  - Anxiety [Unknown]
  - Toxicity to various agents [Unknown]
  - Overdose [Unknown]
  - Device breakage [Unknown]
  - Off label use [Unknown]
  - Fall [Unknown]
  - Constipation [Not Recovered/Not Resolved]
